FAERS Safety Report 4281790-8 (Version None)
Quarter: 2004Q1

REPORT INFORMATION
  Report Type: 
  Country: None (occurrence: None)
  Receive Date: 20040128
  Receipt Date: 20040115
  Transmission Date: 20041129
  Serious: Yes (Hospitalization)
  Sender: FDA-Public Use
  Company Number: KDL061510

PATIENT
  Age: 49 Year
  Sex: Male

DRUGS (14)
  1. PROCRIT [Suspect]
     Indication: PRE-EXISTING DISEASE
     Dosage: 60000 U, WEEKLY, SC
     Route: 058
     Dates: start: 20030101, end: 20031219
  2. NEUPOGEN [Concomitant]
  3. OPRELVEKIN [Concomitant]
  4. PEGINTERFERON ALFA-2B [Concomitant]
  5. RIBAVIRIN [Concomitant]
  6. CITALOPRAM [Concomitant]
  7. ZOLPIDEM TARTRATE [Concomitant]
  8. MULTI-VITAMINS [Concomitant]
  9. DOCUSATE SODIUM [Concomitant]
  10. FOLATE SODIUM [Concomitant]
  11. OMEPRAZOLE [Concomitant]
  12. HYDROXYZINE [Concomitant]
  13. URSODEOXYCHOLIC ACID [Concomitant]
  14. PEGULATED INTERFERON ALFA-2B [Concomitant]

REACTIONS (2)
  - DYSPNOEA [None]
  - HAEMOGLOBIN DECREASED [None]
